FAERS Safety Report 4682079-5 (Version None)
Quarter: 2005Q2

REPORT INFORMATION
  Report Type: 
  Country: None (occurrence: None)
  Receive Date: 20050602
  Receipt Date: 20050519
  Transmission Date: 20051028
  Serious: Yes (Hospitalization)
  Sender: FDA-Public Use
  Company Number: CERZ-10731

PATIENT
  Age: 29 Year
  Sex: Female
  Weight: 60 kg

DRUGS (3)
  1. CEREZYME [Suspect]
     Indication: GAUCHER'S DISEASE
     Dosage: 3600 UNITS Q2WKS IV
     Route: 042
     Dates: start: 20040914
  2. CEREZYME [Suspect]
     Indication: GAUCHER'S DISEASE
     Dates: start: 19991101, end: 20040301
  3. CEREZYME [Suspect]
     Indication: GAUCHER'S DISEASE
     Dates: start: 19980601, end: 19990401

REACTIONS (6)
  - DRUG EXPOSURE DURING PREGNANCY [None]
  - INTRA-UTERINE DEATH [None]
  - MENTAL DISORDER [None]
  - PLACENTAL DISORDER [None]
  - PREGNANCY [None]
  - THROMBOCYTOPENIA [None]
